FAERS Safety Report 9726335 (Version 1)
Quarter: 2013Q4

REPORT INFORMATION
  Report Type: Spontaneous
  Country: US (occurrence: None)
  Receive Date: 20131202
  Receipt Date: 20131202
  Transmission Date: 20140711
  Serious: Yes (Hospitalization, Other)
  Sender: FDA-Public Use
  Company Number: None

PATIENT
  Age: 60 Year
  Sex: Male
  Weight: 122 kg

DRUGS (3)
  1. LEVAQUIN [Suspect]
     Indication: DIVERTICULITIS
     Dosage: 1 TABLET QD, ORAL
     Route: 048
     Dates: start: 20131007, end: 20131014
  2. OMEPRAZOLE [Concomitant]
  3. PROPRANOLOL [Concomitant]

REACTIONS (2)
  - Deep vein thrombosis [None]
  - Tendonitis [None]
